FAERS Safety Report 5830723-9 (Version None)
Quarter: 2008Q3

REPORT INFORMATION
  Report Type: 
  Country: None (occurrence: None)
  Receive Date: 20080801
  Receipt Date: 20071023
  Transmission Date: 20090109
  Serious: Yes (Other)
  Sender: FDA-Public Use
  Company Number: US-BRISTOL-MYERS SQUIBB COMPANY-13952486

PATIENT
  Age: 60 Year
  Sex: Female
  Weight: 85 kg

DRUGS (11)
  1. COUMADIN [Suspect]
     Dosage: INCREASED TO 6MG/D THEN 7MG/D. THEN DECREASED TO 7MG/D FOR 4 DAYS AND 6MG/D FOR 3 DAYS A WEEK.
     Dates: start: 20031227
  2. SYNTHROID [Concomitant]
  3. VYTORIN [Concomitant]
  4. FISH OIL [Concomitant]
  5. CALCIUM [Concomitant]
  6. ASCORBIC ACID [Concomitant]
  7. NIACIN [Concomitant]
  8. CHONDROITIN SULFATE + GLUCOSAMINE [Concomitant]
  9. GARLIC [Concomitant]
  10. FOLIC ACID [Concomitant]
  11. SINGULAIR [Concomitant]

REACTIONS (1)
  - INTERNATIONAL NORMALISED RATIO FLUCTUATION [None]
